FAERS Safety Report 8923030 (Version 1)
Quarter: 2012Q4

REPORT INFORMATION
  Report Type: 
  Country: US (occurrence: US)
  Receive Date: 20121123
  Receipt Date: 20121123
  Transmission Date: 20130627
  Serious: Yes (Hospitalization)
  Sender: FDA-Public Use
  Company Number: US-JNJFOC-20121109929

PATIENT
  Age: 22 Year
  Sex: Female

DRUGS (2)
  1. INFLIXIMAB, RECOMBINANT [Suspect]
     Indication: PUSTULAR PSORIASIS
     Dosage: at weks 0, 2, 6 and then every 8 weeks
     Route: 042
  2. INFLIXIMAB, RECOMBINANT [Suspect]
     Indication: PSORIATIC ARTHROPATHY
     Dosage: at weks 0, 2, 6 and then every 8 weeks
     Route: 042

REACTIONS (2)
  - Lupus-like syndrome [Unknown]
  - Exposure during pregnancy [Recovered/Resolved]
